FAERS Safety Report 21990086 (Version 1)
Quarter: 2023Q1

REPORT INFORMATION
  Report Type: Spontaneous
  Country: US (occurrence: None)
  Receive Date: 20230213
  Receipt Date: 20230213
  Transmission Date: 20230418
  Serious: Yes (Disabling)
  Sender: FDA-Public Use
  Company Number: None

PATIENT
  Age: 59 Year
  Sex: Female
  Weight: 56.25 kg

DRUGS (15)
  1. PAXLOVID [Suspect]
     Active Substance: NIRMATRELVIR\RITONAVIR
     Indication: SARS-CoV-2 test positive
     Dosage: OTHER QUANTITY : 30 TABLET(S);?FREQUENCY : TWICE A DAY;?
     Route: 048
     Dates: start: 20230130, end: 20230203
  2. Amoxicillin-clavulante [Concomitant]
  3. ACETAMINOPHEN\HYDROCODONE [Concomitant]
     Active Substance: ACETAMINOPHEN\HYDROCODONE
  4. ONDANSETRON [Concomitant]
     Active Substance: ONDANSETRON
  5. SUMATRIPTAN [Concomitant]
     Active Substance: SUMATRIPTAN
  6. LEVOTHYROXINE [Concomitant]
     Active Substance: LEVOTHYROXINE
  7. GABAPENTIN [Concomitant]
     Active Substance: GABAPENTIN
  8. Cyclobenaprine [Concomitant]
  9. Omega 3 - dha-fish oil [Concomitant]
  10. Fluticasone propionaye [Concomitant]
  11. DICLOFENAC [Concomitant]
     Active Substance: DICLOFENAC
  12. MAGNESIUM OXIDE [Concomitant]
     Active Substance: MAGNESIUM OXIDE
  13. BIOTIN [Concomitant]
     Active Substance: BIOTIN
  14. Calcium carbonate Vit d3 [Concomitant]
  15. CYANOCOBALAMIN [Concomitant]
     Active Substance: CYANOCOBALAMIN

REACTIONS (8)
  - Weight decreased [None]
  - Taste disorder [None]
  - Migraine [None]
  - Rhinitis [None]
  - Acute sinusitis [None]
  - Upper-airway cough syndrome [None]
  - Fatigue [None]
  - Conjunctivitis [None]

NARRATIVE: CASE EVENT DATE: 20230205
